FAERS Safety Report 5201718-3 (Version None)
Quarter: 2006Q4

REPORT INFORMATION
  Report Type: 
  Country: None (occurrence: None)
  Receive Date: 20061012
  Receipt Date: 20051129
  Transmission Date: 20070319
  Serious: Yes (Other)
  Sender: FDA-Public Use
  Company Number: US-JNJFOC-20051106544

PATIENT
  Age: 66 Year
  Sex: Male
  Weight: 80.7403 kg

DRUGS (10)
  1. NESIRITIDE (NESIRITIDE) INJECTION [Suspect]
     Indication: CARDIAC FAILURE CONGESTIVE
     Dosage: 0.01 MG/KG, 1 IN 1 MINUTE, INTRAVENOUS
     Route: 042
     Dates: start: 20040129, end: 20040130
  2. ALLOPURINOL SODIUM [Concomitant]
  3. ASPIRIN (ACETYLSLAICYLIC ACID) [Concomitant]
  4. COLCHICINE [Concomitant]
  5. DIGOXIN [Concomitant]
  6. GLUCOPHAGE [Concomitant]
  7. LASIX [Concomitant]
  8. LOPRESSOR [Concomitant]
  9. PEPCID [Concomitant]
  10. VASOTEC [Concomitant]

REACTIONS (2)
  - HYPOTENSION [None]
  - INFUSION RELATED REACTION [None]
